FAERS Safety Report 17353481 (Version 1)
Quarter: 2020Q1

REPORT INFORMATION
  Report Type: Spontaneous
  Country: IE (occurrence: IE)
  Receive Date: 20200131
  Receipt Date: 20200131
  Transmission Date: 20200409
  Serious: Yes (Other)
  Sender: FDA-Public Use
  Company Number: IE-009507513-2001IRL010009

PATIENT
  Sex: Female

DRUGS (1)
  1. SINEMET PLUS 25MG/100MG TABLETS [Suspect]
     Active Substance: CARBIDOPA\LEVODOPA
     Indication: PARKINSON^S DISEASE
     Dosage: 25/100 MG

REACTIONS (4)
  - Product physical issue [Unknown]
  - Therapeutic product effect decreased [Recovered/Resolved]
  - Suspected product quality issue [Unknown]
  - Motor dysfunction [Recovered/Resolved]
